FAERS Safety Report 7798768 (Version 2)
Quarter: 2015Q3

REPORT INFORMATION
  Report Type: Spontaneous
  Country: ZA (occurrence: ZA)
  Receive Date: 20110203
  Receipt Date: 20150929
  Transmission Date: 20151125
  Serious: Yes (Other)
  Sender: FDA-Public Use
  Company Number: ZA-BRISTOL-MYERS SQUIBB COMPANY-15526171

PATIENT
  Sex: Male

DRUGS (2)
  1. WARFARIN SODIUM. [Suspect]
     Active Substance: WARFARIN SODIUM
     Indication: PRODUCT USED FOR UNKNOWN INDICATION
     Dosage: UNK
     Route: 064
  2. HEPARIN [Suspect]
     Active Substance: HEPARIN SODIUM
     Indication: PRODUCT USED FOR UNKNOWN INDICATION
     Dosage: UNK
     Route: 064

REACTIONS (9)
  - Subarachnoid haemorrhage [None]
  - Astrocytoma [None]
  - Foetal growth restriction [Unknown]
  - Large for dates baby [Unknown]
  - Maternal drugs affecting foetus [None]
  - Nasal disorder [Unknown]
  - Cerebral haemorrhage [None]
  - Nose deformity [None]
  - Foetal exposure during pregnancy [Recovered/Resolved]
